FAERS Safety Report 13831532 (Version 1)
Quarter: 2017Q3

REPORT INFORMATION
  Report Type: Spontaneous
  Country: US (occurrence: US)
  Receive Date: 20170803
  Receipt Date: 20170803
  Transmission Date: 20171127
  Serious: Yes (Death, Hospitalization)
  Sender: FDA-Public Use
  Company Number: US-B.I. PHARMACEUTICALS,INC./RIDGEFIELD-2017-BI-043078

PATIENT
  Age: 85 Year
  Sex: Female

DRUGS (1)
  1. PRADAXA [Suspect]
     Active Substance: DABIGATRAN ETEXILATE MESYLATE
     Indication: PRODUCT USED FOR UNKNOWN INDICATION
     Route: 065

REACTIONS (11)
  - Hypovolaemic shock [Fatal]
  - Acute respiratory failure [Fatal]
  - Haemorrhagic anaemia [Fatal]
  - Pneumonia [Fatal]
  - Pleural effusion [Fatal]
  - Acute kidney injury [Fatal]
  - Disseminated intravascular coagulation [Fatal]
  - Duodenal ulcer [Fatal]
  - Duodenal ulcer haemorrhage [Fatal]
  - Encephalopathy [Fatal]
  - Gastrointestinal haemorrhage [Fatal]
